FAERS Safety Report 12668368 (Version 1)
Quarter: 2016Q3

REPORT INFORMATION
  Report Type: Spontaneous
  Country: JP (occurrence: JP)
  Receive Date: 20160819
  Receipt Date: 20160819
  Transmission Date: 20161109
  Serious: Yes (Hospitalization, Other)
  Sender: FDA-Public Use
  Company Number: JP-PRESTIUM-2015RN000210

PATIENT

DRUGS (5)
  1. METHYCOBAL [Concomitant]
     Active Substance: METHYLCOBALAMIN
     Dosage: UNK
  2. ZOVIRAX [Suspect]
     Active Substance: ACYCLOVIR
     Dosage: 375 MG, 1D
  3. LYRICA [Concomitant]
     Active Substance: PREGABALIN
     Dosage: UNK
  4. VALACYCLOVIR HYDROCHLORIDE. [Suspect]
     Active Substance: VALACYCLOVIR HYDROCHLORIDE
     Indication: HERPES ZOSTER
     Dosage: 1000 MG, TID
     Route: 048
  5. ZOVIRAX [Suspect]
     Active Substance: ACYCLOVIR
     Indication: HERPES ZOSTER
     Dosage: 250 MG, 1D
     Route: 065

REACTIONS (7)
  - Acute kidney injury [Recovering/Resolving]
  - Altered state of consciousness [Recovered/Resolved]
  - Toxic encephalopathy [Recovering/Resolving]
  - Anuria [Recovering/Resolving]
  - Decreased appetite [Recovering/Resolving]
  - Feeling abnormal [Recovering/Resolving]
  - Somnolence [Recovering/Resolving]
